FAERS Safety Report 10154055 (Version 1)
Quarter: 2014Q2

REPORT INFORMATION
  Report Type: Spontaneous
  Country: US (occurrence: None)
  Receive Date: 20140502
  Receipt Date: 20140502
  Transmission Date: 20141212
  Serious: Yes (Hospitalization)
  Sender: FDA-Public Use
  Company Number: UTC-047843

PATIENT
  Age: 54 Year
  Sex: Female

DRUGS (1)
  1. REMODULIN  (10 MILLIGRAM/MILLILITERS, INJECTION FOR INFUSION) (TREPROSTINIL SODIUM) [Suspect]
     Indication: PULMONARY ARTERIAL HYPERTENSION
     Dosage: (0.59 UG/KG, 1 IN 1 MIN)
     Route: 058
     Dates: start: 20130305

REACTIONS (2)
  - Infusion site infection [None]
  - Fluid retention [None]
